FAERS Safety Report 17988636 (Version 1)
Quarter: 2020Q3

REPORT INFORMATION
  Report Type: Spontaneous
  Country: US (occurrence: US)
  Receive Date: 20200707
  Receipt Date: 20200707
  Transmission Date: 20201103
  Serious: No
  Sender: FDA-Public Use
  Company Number: US-PFIZER INC-2020260352

PATIENT
  Age: 55 Year
  Sex: Female

DRUGS (1)
  1. IBRANCE [Suspect]
     Active Substance: PALBOCICLIB
     Dosage: 100 MG, ONCE DAILY FOR 21 DAYS THEN 1 WEEK OFF, EVERY 28 DAYS)
     Route: 048
     Dates: start: 20191218

REACTIONS (1)
  - Blood count abnormal [Unknown]
